FAERS Safety Report 9240130 (Version 1)
Quarter: 2013Q2

REPORT INFORMATION
  Report Type: Spontaneous
  Country: US (occurrence: None)
  Receive Date: 20130417
  Receipt Date: 20130417
  Transmission Date: 20140414
  Serious: Yes (Hospitalization)
  Sender: FDA-Public Use
  Company Number: DSU-2013-02878

PATIENT
  Sex: Female
  Weight: 77.11 kg

DRUGS (1)
  1. BENICAR HCT [Suspect]
     Indication: HYPERTENSION
     Route: 048
     Dates: end: 2012

REACTIONS (4)
  - Dizziness [None]
  - Syncope [None]
  - Dehydration [None]
  - Blood pressure increased [None]
